FAERS Safety Report 19727701 (Version 1)
Quarter: 2021Q3

REPORT INFORMATION
  Report Type: Spontaneous
  Country: US (occurrence: US)
  Receive Date: 20210820
  Receipt Date: 20210820
  Transmission Date: 20211014
  Serious: No
  Sender: FDA-Public Use
  Company Number: US-BAYER-2021-194406

PATIENT
  Sex: Female

DRUGS (2)
  1. ACETYLSALICYLIC ACID [Suspect]
     Active Substance: ASPIRIN
  2. IOPROMIDE. [Suspect]
     Active Substance: IOPROMIDE
     Indication: ARTERIOGRAM
     Dosage: UNK UNK, ONCE

REACTIONS (1)
  - Exposure during pregnancy [None]
